FAERS Safety Report 4993826-7 (Version None)
Quarter: 2006Q2

REPORT INFORMATION
  Report Type: 
  Country: None (occurrence: None)
  Receive Date: 20060505
  Receipt Date: 20051025
  Transmission Date: 20061013
  Serious: Yes (Hospitalization, Disabling)
  Sender: FDA-Public Use
  Company Number: US-MERCK-0510USA08971

PATIENT
  Age: 52 Year
  Sex: Male
  Weight: 98 kg

DRUGS (8)
  1. VIOXX [Suspect]
     Indication: PAIN
     Route: 048
     Dates: start: 19990706, end: 20001008
  2. VIOXX [Suspect]
     Route: 048
     Dates: start: 19990706, end: 20001008
  3. VIOXX [Suspect]
     Route: 048
     Dates: start: 20000101, end: 20010101
  4. VIOXX [Suspect]
     Route: 048
     Dates: start: 20000101, end: 20010101
  5. VIOXX [Suspect]
     Indication: OSTEOARTHRITIS
     Route: 048
     Dates: start: 19990706, end: 20001008
  6. VIOXX [Suspect]
     Route: 048
     Dates: start: 19990706, end: 20001008
  7. VIOXX [Suspect]
     Route: 048
     Dates: start: 20000101, end: 20010101
  8. VIOXX [Suspect]
     Route: 048
     Dates: start: 20000101, end: 20010101

REACTIONS (3)
  - CEREBROVASCULAR ACCIDENT [None]
  - HERNIA REPAIR [None]
  - MYOCARDIAL INFARCTION [None]
